FAERS Safety Report 11680692 (Version 11)
Quarter: 2019Q3

REPORT INFORMATION
  Report Type: Spontaneous
  Country: CA (occurrence: CA)
  Receive Date: 20151029
  Receipt Date: 20190904
  Transmission Date: 20191004
  Serious: Yes (Other)
  Sender: FDA-Public Use
  Company Number: CA-ROCHE-1650806

PATIENT
  Age: 77 Year
  Sex: Female

DRUGS (9)
  1. XOLAIR [Suspect]
     Active Substance: OMALIZUMAB
     Route: 058
     Dates: start: 20161115
  2. OMNARIS [Concomitant]
     Active Substance: CICLESONIDE
     Indication: PRODUCT USED FOR UNKNOWN INDICATION
     Route: 065
  3. VENTOLIN [Concomitant]
     Active Substance: ALBUTEROL SULFATE
     Indication: PRODUCT USED FOR UNKNOWN INDICATION
     Route: 065
  4. XOLAIR [Suspect]
     Active Substance: OMALIZUMAB
     Indication: ASTHMA
     Route: 058
     Dates: start: 20051006, end: 20060510
  5. XOLAIR [Suspect]
     Active Substance: OMALIZUMAB
     Route: 058
     Dates: start: 20110210, end: 20110323
  6. XOLAIR [Suspect]
     Active Substance: OMALIZUMAB
     Route: 058
     Dates: start: 20151215
  7. XOLAIR [Suspect]
     Active Substance: OMALIZUMAB
     Route: 058
     Dates: start: 20181211, end: 201812
  8. ADVAIR HFA [Concomitant]
     Active Substance: FLUTICASONE PROPIONATE\SALMETEROL XINAFOATE
     Indication: PRODUCT USED FOR UNKNOWN INDICATION
     Route: 065
  9. XOLAIR [Suspect]
     Active Substance: OMALIZUMAB
     Route: 058
     Dates: start: 20180516

REACTIONS (14)
  - Nasopharyngitis [Recovering/Resolving]
  - Sinus disorder [Unknown]
  - Sensitivity to weather change [Unknown]
  - Cough [Unknown]
  - Productive cough [Unknown]
  - Asthma [Not Recovered/Not Resolved]
  - Choking sensation [Unknown]
  - Blood immunoglobulin E increased [Unknown]
  - Secretion discharge [Unknown]
  - Forced expiratory volume decreased [Not Recovered/Not Resolved]
  - Fatigue [Unknown]
  - Upper respiratory tract infection [Unknown]
  - Hypersensitivity [Unknown]
  - Malaise [Unknown]

NARRATIVE: CASE EVENT DATE: 20150722
